FAERS Safety Report 16498876 (Version 2)
Quarter: 2019Q2

REPORT INFORMATION
  Report Type: Spontaneous
  Country: US (occurrence: US)
  Receive Date: 20190630
  Receipt Date: 20190630
  Transmission Date: 20190711
  Serious: No
  Sender: FDA-Public Use
  Company Number: US-JNJFOC-20190633029

PATIENT

DRUGS (1)
  1. PALIPERIDONE PALMITATE INJECTION [Suspect]
     Active Substance: PALIPERIDONE PALMITATE
     Indication: SCHIZOPHRENIA
     Route: 030

REACTIONS (1)
  - Injection site pain [Unknown]
